FAERS Safety Report 10869865 (Version 3)
Quarter: 2015Q2

REPORT INFORMATION
  Report Type: Report from Study
  Country: US (occurrence: None)
  Receive Date: 20150219
  Receipt Date: 20150629
  Transmission Date: 20150821
  Serious: Yes (Death, Life-Threatening, Hospitalization, Other)
  Sender: FDA-Public Use
  Company Number: US-2014VAL000603

PATIENT
  Age: 67 Year
  Sex: Male
  Weight: 125 kg

DRUGS (55)
  1. PANTOPRAZOLE [Concomitant]
     Active Substance: PANTOPRAZOLE SODIUM
  2. BENZONATATE. [Concomitant]
     Active Substance: BENZONATATE
  3. SIMVASTATINE (SMVASTATIN) [Concomitant]
  4. NAPROXEN (NAPROXEN) [Suspect]
     Active Substance: NAPROXEN
     Indication: OSTEOARTHRITIS
     Route: 048
     Dates: start: 20130518, end: 20140123
  5. LATANOPROST. [Concomitant]
     Active Substance: LATANOPROST
  6. DOCUSATE SODIUM. [Concomitant]
     Active Substance: DOCUSATE SODIUM
  7. CELECOXIB (CELECOXIB) [Suspect]
     Active Substance: CELECOXIB
     Indication: RHEUMATOID ARTHRITIS
     Route: 048
     Dates: start: 20130518, end: 20140123
  8. CALCITRIOL. [Concomitant]
     Active Substance: CALCITRIOL
  9. AMBIEN [Concomitant]
     Active Substance: ZOLPIDEM TARTRATE
  10. VALPROIC ACID. [Concomitant]
     Active Substance: VALPROIC ACID
  11. ANDROGEL [Concomitant]
     Active Substance: TESTOSTERONE
  12. CIALIS [Concomitant]
     Active Substance: TADALAFIL
  13. ALBUTEROL /00139501/  (SALBUTAMOL) [Concomitant]
     Active Substance: ALBUTEROL
  14. HALOPERIDOL. [Concomitant]
     Active Substance: HALOPERIDOL
  15. TRAMADOL [Concomitant]
     Active Substance: TRAMADOL
  16. FUMARIC ACID [Concomitant]
     Active Substance: FUMARIC ACID
  17. ACETAMINOPHEN (PARACETAMOL) [Concomitant]
     Active Substance: ACETAMINOPHEN
  18. BENAZEPRIL HYDROCHLORIDE (BENAZEPRIL HYDROCHLORIDE) [Suspect]
     Active Substance: BENAZEPRIL HYDROCHLORIDE
     Indication: HYPERTENSION
     Route: 048
     Dates: start: 20140309, end: 20140316
  19. NAPROXEN (NAPROXEN) [Suspect]
     Active Substance: NAPROXEN
     Indication: RHEUMATOID ARTHRITIS
     Route: 048
     Dates: start: 20130518, end: 20140123
  20. OMEPRAZOLE. [Concomitant]
     Active Substance: OMEPRAZOLE
  21. RISPERIDONE. [Concomitant]
     Active Substance: RISPERIDONE
  22. ARTIFICIAL TEARS (POLYVINYL ALCOHOL, POVIDONE) [Concomitant]
  23. MORPHINE [Concomitant]
     Active Substance: MORPHINE
  24. IBUPROFEN (IBUPROFEN) [Suspect]
     Active Substance: IBUPROFEN
     Indication: RHEUMATOID ARTHRITIS
     Route: 048
     Dates: start: 20130518, end: 20140123
  25. KETOCONAZOLE. [Concomitant]
     Active Substance: KETOCONAZOLE
  26. TERBINAFINE HYDROCHLORIDE. [Concomitant]
     Active Substance: TERBINAFINE HYDROCHLORIDE
  27. ATORVASTATIN [Concomitant]
     Active Substance: ATORVASTATIN
  28. VICODIN [Concomitant]
     Active Substance: ACETAMINOPHEN\HYDROCODONE BITARTRATE
  29. GLUCAGON. [Concomitant]
     Active Substance: GLUCAGON
  30. CALCIUM + VITAMIN D (CALCIUM CARBONATE, COLECALCIFEROL) [Concomitant]
  31. IPRATROPIUM BROMIDE. [Concomitant]
     Active Substance: IPRATROPIUM BROMIDE
  32. CITRACAL /00751520/ (CALCIUM CITRATE) [Concomitant]
  33. CELECOXIB (CELECOXIB) [Suspect]
     Active Substance: CELECOXIB
     Indication: OSTEOARTHRITIS
     Route: 048
     Dates: start: 20130518, end: 20140123
  34. NEXIUM [Concomitant]
     Active Substance: ESOMEPRAZOLE MAGNESIUM
  35. VITAMIN D3 [Concomitant]
     Active Substance: CHOLECALCIFEROL
  36. SERTRALINE [Concomitant]
     Active Substance: SERTRALINE HYDROCHLORIDE
  37. LEVOTHYROXINE SODIUM. [Concomitant]
     Active Substance: LEVOTHYROXINE SODIUM
  38. DIAZEPAM. [Concomitant]
     Active Substance: DIAZEPAM
  39. CYCLOBENZAPRINE HCL (CYCLOBENZAPRINE HYDROCHLORIDE) [Concomitant]
  40. GABAPENTIN. [Concomitant]
     Active Substance: GABAPENTIN
  41. MOMETASONE FUROATE. [Concomitant]
     Active Substance: MOMETASONE FUROATE
  42. DILAUDID [Concomitant]
     Active Substance: HYDROMORPHONE HYDROCHLORIDE
  43. ONDANSETRON [Concomitant]
     Active Substance: ONDANSETRON
  44. MAGNESIUM OXIDE. [Concomitant]
     Active Substance: MAGNESIUM OXIDE
  45. CALCIUM +D (CALCIUM, ERGOCALCIFEROL) [Concomitant]
  46. ADDERALL [Concomitant]
     Active Substance: AMPHETAMINE ASPARTATE\AMPHETAMINE SULFATE\DEXTROAMPHETAMINE SACCHARATE\DEXTROAMPHETAMINE SULFATE
  47. DEXTROSE (GLUCOSE) [Concomitant]
     Active Substance: DEXTROSE
  48. METOPROLOL TARTRATE. [Concomitant]
     Active Substance: METOPROLOL TARTRATE
  49. CALCIUM CARBONATE. [Concomitant]
     Active Substance: CALCIUM CARBONATE
  50. SYMBICORT [Concomitant]
     Active Substance: BUDESONIDE\FORMOTEROL FUMARATE DIHYDRATE
  51. LOVENOX [Concomitant]
     Active Substance: ENOXAPARIN SODIUM
  52. FISH OIL [Concomitant]
     Active Substance: FISH OIL
  53. MULTIVITAMIN /02358601/ (ASCORBIC ACID, BIOTIN, CALCIUM PANTOTHENATE, CYANOCOBALAMIN, FOLIC ACID, NICOTINIC ACID, PYRIDOXINE HYDROCHLORIDE, RIBOFLAVIN, THIAMINE HYDROCHLORIDE, TOCOPHERYL ACETATE) [Concomitant]
  54. IBUPROFEN (IBUPROFEN) [Suspect]
     Active Substance: IBUPROFEN
     Indication: OSTEOARTHRITIS
     Route: 048
     Dates: start: 20130518, end: 20140123
  55. FLUNISOLIDE. [Concomitant]
     Active Substance: FLUNISOLIDE

REACTIONS (4)
  - Respiratory failure [None]
  - Cardiac arrest [None]
  - Peritonitis [None]
  - Acute kidney injury [None]

NARRATIVE: CASE EVENT DATE: 20140306
